FAERS Safety Report 5903415-5 (Version None)
Quarter: 2008Q3

REPORT INFORMATION
  Report Type: 
  Country: None (occurrence: None)
  Receive Date: 20080926
  Receipt Date: 20080919
  Transmission Date: 20090109
  Serious: Yes (Other)
  Sender: FDA-Public Use
  Company Number: 2008SP019460

PATIENT

DRUGS (1)
  1. CLARITIN [Suspect]
     Dosage: 10 MG; PO
     Route: 048

REACTIONS (1)
  - INTRAOCULAR PRESSURE TEST ABNORMAL [None]
